FAERS Safety Report 9089275 (Version 1)
Quarter: 2013Q1

REPORT INFORMATION
  Report Type: Spontaneous
  Country: FR (occurrence: FR)
  Receive Date: 20130131
  Receipt Date: 20130131
  Transmission Date: 20140127
  Serious: Yes (Hospitalization)
  Sender: FDA-Public Use
  Company Number: PHHY2013FR007423

PATIENT
  Age: 73 Year
  Sex: Male

DRUGS (2)
  1. SINTROM [Suspect]
     Indication: MEDICAL DEVICE IMPLANTATION
     Dosage: 4 MG, UNK
     Route: 048
     Dates: start: 1988, end: 20121122
  2. OFLOXACINE [Interacting]
     Indication: URINARY TRACT INFECTION
     Dosage: 200 MG, UNK
     Route: 048
     Dates: start: 20121117, end: 20121122

REACTIONS (2)
  - Renal haematoma [Recovering/Resolving]
  - Pain [Recovering/Resolving]
